FAERS Safety Report 7007517-4 (Version None)
Quarter: 2010Q3

REPORT INFORMATION
  Report Type: 
  Country: None (occurrence: None)
  Receive Date: 20100915
  Receipt Date: 20100910
  Transmission Date: 20110219
  Serious: Yes (Death, Life-Threatening, Hospitalization)
  Sender: FDA-Public Use
  Company Number: 2010SP048746

PATIENT
  Age: 71 Year
  Sex: Male

DRUGS (1)
  1. TEMODAL [Suspect]
     Indication: GLIOBLASTOMA MULTIFORME
     Dosage: 75 MG/M2
     Dates: start: 20100706, end: 20100729

REACTIONS (2)
  - PANCYTOPENIA [None]
  - SEPTIC SHOCK [None]
